FAERS Safety Report 17335726 (Version 1)
Quarter: 2020Q1

REPORT INFORMATION
  Report Type: Spontaneous
  Country: NL (occurrence: NL)
  Receive Date: 20200128
  Receipt Date: 20200128
  Transmission Date: 20200409
  Serious: Yes (Life-Threatening, Other)
  Sender: FDA-Public Use
  Company Number: NL-AUROBINDO-AUR-APL-2018-003014

PATIENT

DRUGS (4)
  1. AVASTIN [Suspect]
     Active Substance: BEVACIZUMAB
     Indication: COLORECTAL CANCER
     Dosage: 5 MILLIGRAM/KILOGRAM, TWICE A WEEK, MOST RECENT DOSE OF BEVACIZUMAB WAS ON 23/SEP/2016
     Route: 042
     Dates: start: 20160729
  2. 5-FLUOROURACIL [Suspect]
     Active Substance: FLUOROURACIL
     Indication: COLORECTAL CANCER
     Dosage: 2400 MILLIGRAM/SQ. METER, TWICE A WEEK, MOST RECENT DOSE WAS ON 09/OCT/2016
     Route: 042
     Dates: start: 20160729
  3. LEUCOVORINE [Suspect]
     Active Substance: LEUCOVORIN
     Indication: COLORECTAL CANCER
     Dosage: 400 MILLIGRAM/SQ. METER, TWICE A WEEK, MOST RECENT DOSE WAS ON 07/OCT/2016
     Route: 042
     Dates: start: 20160729
  4. OXALIPLATIN. [Suspect]
     Active Substance: OXALIPLATIN
     Indication: COLORECTAL CANCER
     Dosage: 85 MILLIGRAM/SQ. METER, TWICE A WEEK, DATE OF MOST RECENT DOSE WAS ON 07/OCT/2016
     Route: 042
     Dates: start: 20160729

REACTIONS (2)
  - Gastrointestinal anastomotic leak [Recovering/Resolving]
  - Sepsis [Recovering/Resolving]

NARRATIVE: CASE EVENT DATE: 20161031
